FAERS Safety Report 14199886 (Version 2)
Quarter: 2017Q4

REPORT INFORMATION
  Report Type: Report from Study
  Country: US (occurrence: US)
  Receive Date: 20171117
  Receipt Date: 20171129
  Transmission Date: 20180321
  Serious: Yes (Hospitalization)
  Sender: FDA-Public Use
  Company Number: US-JNJFOC-20171118482

PATIENT
  Age: 65 Year
  Sex: Male

DRUGS (26)
  1. IMBRUVICA [Suspect]
     Active Substance: IBRUTINIB
     Indication: B-CELL SMALL LYMPHOCYTIC LYMPHOMA
     Route: 048
     Dates: start: 20171016
  2. LASIX [Concomitant]
     Active Substance: FUROSEMIDE
  3. TOPROL XL [Concomitant]
     Active Substance: METOPROLOL SUCCINATE
  4. PRAVASTATIN. [Concomitant]
     Active Substance: PRAVASTATIN
  5. DEPAKOTE [Concomitant]
     Active Substance: DIVALPROEX SODIUM
  6. MULTIVITAMINS [Concomitant]
     Active Substance: VITAMINS
  7. NAPROXEN. [Concomitant]
     Active Substance: NAPROXEN
  8. MS CONTIN [Concomitant]
     Active Substance: MORPHINE SULFATE
  9. MIRALAX [Concomitant]
     Active Substance: POLYETHYLENE GLYCOL 3350
  10. TOPAMAX [Concomitant]
     Active Substance: TOPIRAMATE
  11. AMBIEN [Concomitant]
     Active Substance: ZOLPIDEM TARTRATE
  12. DIFLUCAN [Concomitant]
     Active Substance: FLUCONAZOLE
  13. IMBRUVICA [Suspect]
     Active Substance: IBRUTINIB
     Indication: B-CELL SMALL LYMPHOCYTIC LYMPHOMA
     Route: 048
     Dates: start: 20171016
  14. CYPROHEPTADINE. [Concomitant]
     Active Substance: CYPROHEPTADINE
  15. GABAPENTIN. [Concomitant]
     Active Substance: GABAPENTIN
  16. VITAMIN D [Concomitant]
     Active Substance: CHOLECALCIFEROL
  17. VITAMIN D3 [Concomitant]
     Active Substance: CHOLECALCIFEROL
  18. POTASSIUM CHLORIDE. [Concomitant]
     Active Substance: POTASSIUM CHLORIDE
  19. PRILOSEC [Concomitant]
     Active Substance: OMEPRAZOLE MAGNESIUM
  20. ZOLOFT [Concomitant]
     Active Substance: SERTRALINE HYDROCHLORIDE
  21. AMIODARONE [Concomitant]
     Active Substance: AMIODARONE
  22. VALACYCLOVIR [Concomitant]
     Active Substance: VALACYCLOVIR HYDROCHLORIDE
  23. PREDNISONE. [Concomitant]
     Active Substance: PREDNISONE
  24. FLOMAX [Concomitant]
     Active Substance: TAMSULOSIN HYDROCHLORIDE
  25. ULTRAM [Concomitant]
     Active Substance: TRAMADOL HYDROCHLORIDE
  26. NORCO [Concomitant]
     Active Substance: ACETAMINOPHEN\HYDROCODONE BITARTRATE

REACTIONS (7)
  - Respiratory tract congestion [Unknown]
  - Appetite disorder [Unknown]
  - Product use issue [Unknown]
  - Body temperature increased [Unknown]
  - Pneumonia [Recovering/Resolving]
  - Oxygen saturation decreased [Unknown]
  - Off label use [Unknown]

NARRATIVE: CASE EVENT DATE: 20171016
